FAERS Safety Report 4317747-8 (Version None)
Quarter: 2004Q1

REPORT INFORMATION
  Report Type: 
  Country: None (occurrence: None)
  Receive Date: 20040315
  Receipt Date: 20031106
  Transmission Date: 20041129
  Serious: Yes (Life-Threatening, Hospitalization, Other)
  Sender: FDA-Public Use
  Company Number: PHBS2003JP12462

PATIENT
  Age: 20 Year
  Sex: Male
  Weight: 60 kg

DRUGS (5)
  1. SIMULECT [Suspect]
     Indication: RENAL TRANSPLANT
     Dosage: 20 MG, ONCE/SINGLE
     Route: 042
     Dates: start: 20031030, end: 20031030
  2. SIMULECT [Suspect]
     Dosage: 20 MG, ONCE/SINGLE
     Route: 042
     Dates: start: 20031103, end: 20031103
  3. NEORAL [Suspect]
     Indication: RENAL TRANSPLANT
     Dosage: 175 MG/D
     Route: 048
     Dates: start: 20031029
  4. CELLCEPT [Suspect]
     Indication: RENAL TRANSPLANT
     Dosage: 1.5 G/D
     Route: 048
     Dates: start: 20031029
  5. HYDROCORTONE [Suspect]
     Indication: RENAL TRANSPLANT
     Dosage: 500 MG/D
     Route: 042
     Dates: start: 20031030, end: 20031126

REACTIONS (7)
  - ACUTE RESPIRATORY DISTRESS SYNDROME [None]
  - FLUID OVERLOAD [None]
  - HAEMORRHAGE [None]
  - INTUBATION [None]
  - PLEURAL EFFUSION [None]
  - PNEUMONIA [None]
  - PYREXIA [None]
